FAERS Safety Report 4953743-5 (Version None)
Quarter: 2006Q1

REPORT INFORMATION
  Report Type: 
  Country: None (occurrence: None)
  Receive Date: 20060323
  Receipt Date: 20060323
  Transmission Date: 20060701
  Serious: Yes (Hospitalization)
  Sender: FDA-Public Use
  Company Number: None

PATIENT
  Age: 67 Year
  Sex: Male
  Weight: 104.3273 kg

DRUGS (10)
  1. LISINOPRIL [Suspect]
     Indication: HYPERTENSION
     Dosage: 5 MG DAILY PO
     Route: 048
     Dates: start: 20020419, end: 20060318
  2. OMEPRAZOLE [Concomitant]
  3. BACLOFEN [Concomitant]
  4. HYDROCODONE 7.5 /ACETAMINOPHEN [Concomitant]
  5. ALLOPURINOL [Concomitant]
  6. ASPIRIN [Concomitant]
  7. LISINOPRIL [Concomitant]
  8. SIMVASTATIN [Concomitant]
  9. METOPROLOL TARTRATE [Concomitant]
  10. FUROSEMIDE [Concomitant]

REACTIONS (8)
  - ANGIONEUROTIC OEDEMA [None]
  - BREATH SOUNDS ABNORMAL [None]
  - CHEST DISCOMFORT [None]
  - DRUG HYPERSENSITIVITY [None]
  - DYSPNOEA [None]
  - DYSPNOEA EXERTIONAL [None]
  - DYSPNOEA PAROXYSMAL NOCTURNAL [None]
  - HYPERHIDROSIS [None]
